FAERS Safety Report 16907907 (Version 2)
Quarter: 2019Q4

REPORT INFORMATION
  Report Type: Spontaneous
  Country: JP (occurrence: JP)
  Receive Date: 20191011
  Receipt Date: 20191112
  Transmission Date: 20200122
  Serious: Yes (Other)
  Sender: FDA-Public Use
  Company Number: JP-MYLANLABS-2019M1094859

PATIENT
  Age: 39 Year
  Sex: Female

DRUGS (16)
  1. SUMATRIPTAN. [Suspect]
     Active Substance: SUMATRIPTAN
     Indication: MIGRAINE WITHOUT AURA
     Dosage: SELF-ADMINISTERED
     Route: 058
  2. SODIUM VALPROATE [Suspect]
     Active Substance: VALPROATE SODIUM
     Dosage: 1000 MILLIGRAM, QD
     Route: 065
     Dates: start: 201712
  3. LOMERIZINE HYDROCHLORIDE [Suspect]
     Active Substance: LOMERIZINE HYDROCHLORIDE
     Indication: MIGRAINE WITHOUT AURA
     Dosage: 10 MILLIGRAM, QD
     Route: 065
  4. CHOTOSAN [Suspect]
     Active Substance: CALCIUM SULFATE\HERBALS
     Indication: MIGRAINE WITHOUT AURA
     Dosage: 7.5 MILLIGRAM, QD
     Route: 048
  5. NARATRIPTAN HYDROCHLORIDE. [Suspect]
     Active Substance: NARATRIPTAN HYDROCHLORIDE
     Indication: MIGRAINE WITHOUT AURA
     Dosage: (1 TABLET, 2.5MG)
     Route: 048
  6. SODIUM VALPROATE [Suspect]
     Active Substance: VALPROATE SODIUM
     Indication: MIGRAINE WITHOUT AURA
     Dosage: 600 MILLIGRAM
     Route: 065
  7. ACETYLSALICYLIC ACID [Suspect]
     Active Substance: ASPIRIN
     Indication: HEADACHE
     Route: 048
  8. AMITRIPTYLINE [Suspect]
     Active Substance: AMITRIPTYLINE
     Indication: MIGRAINE WITHOUT AURA
     Dosage: 30 MILLIGRAM, QD
     Route: 065
  9. GOSHUYUTO [Suspect]
     Active Substance: HERBALS
     Indication: MIGRAINE WITHOUT AURA
  10. PROPRANOLOL [Suspect]
     Active Substance: PROPRANOLOL HYDROCHLORIDE
     Indication: MIGRAINE WITHOUT AURA
     Dosage: 20 MILLIGRAM, QD
     Route: 048
  11. SUMATRIPTAN. [Suspect]
     Active Substance: SUMATRIPTAN
     Indication: MIGRAINE WITHOUT AURA
     Dosage: 20 MILLIGRAM
     Route: 045
  12. AMITRIPTYLINE [Suspect]
     Active Substance: AMITRIPTYLINE
     Dosage: 20 MILLIGRAM, QD
     Route: 065
  13. LOXONIN [Suspect]
     Active Substance: LOXOPROFEN SODIUM
     Indication: MIGRAINE WITHOUT AURA
     Dosage: (1 TABLET, 60MG)
     Route: 065
  14. GOSHUYUTO [Suspect]
     Active Substance: HERBALS
     Indication: PROPHYLAXIS
     Dosage: 7.5 MILLIGRAM, QD
     Route: 065
  15. DULOXETINE. [Concomitant]
     Active Substance: DULOXETINE
     Indication: DEPRESSIVE SYMPTOM
     Dosage: 20 MILLIGRAM, QD
     Route: 065
  16. IMIGRAN                            /01044801/ [Suspect]
     Active Substance: SUMATRIPTAN
     Indication: MIGRAINE WITHOUT AURA
     Dosage: 1 TABLET
     Route: 048

REACTIONS (2)
  - Drug ineffective [Unknown]
  - Nausea [Unknown]
